FAERS Safety Report 8235488-1 (Version None)
Quarter: 2012Q1

REPORT INFORMATION
  Report Type: 
  Country: None (occurrence: None)
  Receive Date: 20120326
  Receipt Date: 20120314
  Transmission Date: 20120608
  Serious: Yes (Hospitalization)
  Sender: FDA-Public Use
  Company Number: DE-ROCHE-1050900

PATIENT
  Age: 14 Year
  Sex: Female

DRUGS (2)
  1. XOLAIR [Suspect]
     Indication: ASTHMA
     Dosage: 4X150 MG EVERY 2 WEEKS
     Route: 058
     Dates: start: 20100817, end: 20110103
  2. XOLAIR [Suspect]
     Route: 058
     Dates: start: 20110301

REACTIONS (7)
  - INJECTION SITE REACTION [None]
  - JOINT SWELLING [None]
  - ARTHRALGIA [None]
  - SYNCOPE [None]
  - HEADACHE [None]
  - TREMOR [None]
  - GASTROENTERITIS [None]
